FAERS Safety Report 20090257 (Version 1)
Quarter: 2021Q4

REPORT INFORMATION
  Report Type: Report from Study
  Country: US (occurrence: US)
  Receive Date: 20211119
  Receipt Date: 20211119
  Transmission Date: 20220304
  Serious: Yes (Hospitalization)
  Sender: FDA-Public Use
  Company Number: US-JNJFOC-20211129179

PATIENT
  Age: 39 Year
  Sex: Male

DRUGS (4)
  1. SPRAVATO [Suspect]
     Active Substance: ESKETAMINE
     Indication: Depression
     Dosage: 56 MG TOTAL 7 DOSES
     Dates: start: 20201005, end: 20201105
  2. SPRAVATO [Suspect]
     Active Substance: ESKETAMINE
     Dosage: 84 MG TOTAL 19 DOSES
     Dates: start: 20201125, end: 20210429
  3. SPRAVATO [Suspect]
     Active Substance: ESKETAMINE
     Dosage: 56 MG TOTAL ONE DOSE
     Dates: start: 20210715, end: 20210715
  4. SPRAVATO [Suspect]
     Active Substance: ESKETAMINE
     Dosage: 84 MG TOTAL 4 DOSES
     Dates: start: 20210729, end: 20210901

REACTIONS (3)
  - Drug dependence [Unknown]
  - Overdose [Unknown]
  - Suicidal ideation [Unknown]

NARRATIVE: CASE EVENT DATE: 20211110
